FAERS Safety Report 9054768 (Version 2)
Quarter: 2013Q1

REPORT INFORMATION
  Report Type: Spontaneous
  Country: DE (occurrence: DE)
  Receive Date: 20130208
  Receipt Date: 20130311
  Transmission Date: 20140127
  Serious: Yes (Other)
  Sender: FDA-Public Use
  Company Number: DE-SHIRE-ALL1-2013-00456

PATIENT
  Sex: Female
  Weight: 80 kg

DRUGS (12)
  1. XAGRID [Suspect]
     Indication: ESSENTIAL THROMBOCYTHAEMIA
     Dosage: (5-6X0.5 MG CAPSULES), 1X/DAY:QD
     Route: 048
     Dates: start: 201206
  2. XAGRID [Suspect]
     Dosage: 1 MG (2X0.5 MG CAPSULE), UNKNOWN
     Route: 048
     Dates: start: 200102
  3. XAGRID [Suspect]
     Dosage: (3-4X0.5 MG CAPSULES), 1X/DAY:QD
     Route: 048
     Dates: start: 2001
  4. XAGRID [Suspect]
     Dosage: 2.5 MG (5X0.5 MG CAPSULE), 1X/DAY:QD
     Route: 048
  5. ASPIRIN PROTECT [Concomitant]
     Indication: THROMBOSIS
     Dosage: 100 MG, 1X/DAY:QD
     Route: 065
     Dates: start: 2001
  6. ASPIRIN PROTECT [Concomitant]
     Indication: OCULAR VASCULAR DISORDER
  7. PANTOZOL [Concomitant]
     Indication: GASTROOESOPHAGEAL REFLUX DISEASE
     Dosage: 1 DF, 1X/DAY:QD
     Route: 065
  8. EUTHYROX [Concomitant]
     Indication: GOITRE
     Dosage: 1 DF, 1X/DAY:QD
     Route: 065
  9. CAPTOHEXAL [Concomitant]
     Indication: PRODUCT USED FOR UNKNOWN INDICATION
     Dosage: 1 DF, 2X/DAY:BID
     Route: 065
  10. BISOPROLOL PLUS [Concomitant]
     Indication: PRODUCT USED FOR UNKNOWN INDICATION
     Dosage: 0.5 DF, 1X/DAY:QD
     Route: 065
  11. LAIF [Concomitant]
     Indication: PRODUCT USED FOR UNKNOWN INDICATION
     Dosage: 1 DF, 1X/DAY:QD
     Route: 065
  12. GINKGO BILOBA [Concomitant]
     Indication: PRODUCT USED FOR UNKNOWN INDICATION
     Dosage: 1 DF, 1X/DAY:QD
     Route: 065

REACTIONS (11)
  - Multiple sclerosis relapse [Not Recovered/Not Resolved]
  - Gastrointestinal haemorrhage [Unknown]
  - Nodule [Unknown]
  - Cyanosis [Unknown]
  - Pallor [Unknown]
  - Blood iron decreased [Unknown]
  - Coagulopathy [Unknown]
  - Oedema peripheral [Unknown]
  - Palpitations [Unknown]
  - Alopecia [Unknown]
  - Abdominal pain [Unknown]
